FAERS Safety Report 9899005 (Version 1)
Quarter: 2014Q1

REPORT INFORMATION
  Report Type: Spontaneous
  Country: RU (occurrence: RU)
  Receive Date: 20140214
  Receipt Date: 20140214
  Transmission Date: 20141002
  Serious: Yes (Death)
  Sender: FDA-Public Use
  Company Number: RU-GLAXOSMITHKLINE-B0968985A

PATIENT
  Age: 24 Year
  Sex: Female

DRUGS (1)
  1. VOTRIENT [Suspect]
     Indication: RHABDOMYOSARCOMA
     Dosage: 800MG PER DAY
     Route: 048
     Dates: start: 201304, end: 201312

REACTIONS (3)
  - Death [Fatal]
  - Colonic fistula [Unknown]
  - Pain [Unknown]
